FAERS Safety Report 7892485-3 (Version None)
Quarter: 2011Q4

REPORT INFORMATION
  Report Type: 
  Country: None (occurrence: None)
  Receive Date: 20111104
  Receipt Date: 20111101
  Transmission Date: 20120403
  Serious: Yes (Hospitalization, Other)
  Sender: FDA-Public Use
  Company Number: US-JNJFOC-20111100464

PATIENT
  Sex: Female
  Weight: 63.5 kg

DRUGS (1)
  1. ORTHO TRI-CYCLEN [Suspect]
     Indication: CONTRACEPTION
     Route: 048
     Dates: start: 20100101, end: 20100101

REACTIONS (2)
  - PULMONARY EMBOLISM [None]
  - HOSPITALISATION [None]
